FAERS Safety Report 7009599-2 (Version None)
Quarter: 2010Q3

REPORT INFORMATION
  Report Type: 
  Country: None (occurrence: None)
  Receive Date: 20100923
  Receipt Date: 20100914
  Transmission Date: 20110219
  Serious: Yes (Other)
  Sender: FDA-Public Use
  Company Number: JP-PFIZER INC-2010116248

PATIENT
  Age: 69 Year
  Sex: Female
  Weight: 54 kg

DRUGS (6)
  1. NORVASC [Suspect]
     Indication: HYPERTENSION
     Dosage: 2.5 MG, 1X/DAY
     Route: 048
     Dates: end: 20080322
  2. ASPIRIN [Concomitant]
     Indication: CEREBRAL INFARCTION
     Dosage: 100 MG, 1X/DAY
     Route: 048
     Dates: start: 20080226, end: 20080324
  3. CEROCRAL [Concomitant]
     Indication: CEREBRAL INFARCTION
     Dosage: 20 MG, 2X/DAY
     Route: 048
     Dates: start: 20080226, end: 20080324
  4. PLAVIX [Concomitant]
     Indication: CEREBRAL INFARCTION
     Dosage: 75 MG, 1X/DAY
     Dates: start: 20080321
  5. RADICUT [Concomitant]
     Indication: CEREBRAL INFARCTION
     Dosage: 30 MG, 2X/DAY
     Route: 041
     Dates: start: 20080322, end: 20080404
  6. OZAGREL SODIUM [Concomitant]
     Indication: CEREBRAL INFARCTION
     Dosage: 80 MG, 2X/DAY
     Route: 041
     Dates: start: 20080322, end: 20080404

REACTIONS (1)
  - PARKINSONISM [None]
